FAERS Safety Report 9994569 (Version 2)
Quarter: 2014Q1

REPORT INFORMATION
  Report Type: Report from Study
  Country: CA (occurrence: CA)
  Receive Date: 20140311
  Receipt Date: 20140311
  Transmission Date: 20141002
  Serious: Yes (Hospitalization)
  Sender: FDA-Public Use
  Company Number: CA-ROCHE-1346538

PATIENT
  Age: 30 Year
  Sex: Female

DRUGS (7)
  1. RITUXAN [Suspect]
     Indication: THROMBOTIC THROMBOCYTOPENIC PURPURA
     Route: 042
     Dates: start: 20140123
  2. TYLENOL [Concomitant]
     Indication: PREMEDICATION
     Route: 048
     Dates: start: 20140123
  3. BENADRYL (CANADA) [Concomitant]
     Indication: PREMEDICATION
     Route: 048
     Dates: start: 20140123
  4. SOLU-MEDROL [Concomitant]
     Indication: PREMEDICATION
     Route: 042
     Dates: start: 20140123
  5. RAMIPRIL [Concomitant]
  6. ELTROXIN [Concomitant]
  7. ASA [Concomitant]
     Route: 065

REACTIONS (3)
  - Thrombosis [Unknown]
  - Wound [Not Recovered/Not Resolved]
  - Off label use [Unknown]
